FAERS Safety Report 16600120 (Version 1)
Quarter: 2019Q3

REPORT INFORMATION
  Report Type: Spontaneous
  Country: FR (occurrence: FR)
  Receive Date: 20190720
  Receipt Date: 20190720
  Transmission Date: 20191004
  Serious: Yes (Death, Congenital Anomaly)
  Sender: FDA-Public Use
  Company Number: FR-TEVA-2019-FR-1078523

PATIENT

DRUGS (6)
  1. PREDNISONE. [Suspect]
     Active Substance: PREDNISONE
     Indication: LYMPHOMA
     Route: 064
     Dates: start: 20180316, end: 20180629
  2. ENDOXAN [Suspect]
     Active Substance: CYCLOPHOSPHAMIDE
     Indication: LYMPHOMA
     Route: 064
     Dates: start: 20180316, end: 20180629
  3. VINCRISTINE TEVA [Suspect]
     Active Substance: VINCRISTINE
     Indication: LYMPHOMA
     Route: 064
     Dates: start: 20180316, end: 20180629
  4. METHOTREXATE (METHOTREXATE SODIUM) [Suspect]
     Active Substance: METHOTREXATE SODIUM
     Indication: LYMPHOMA
     Route: 064
     Dates: start: 20180316, end: 20180316
  5. DOXORUBICINE ACCORD [Suspect]
     Active Substance: DOXORUBICIN
     Indication: LYMPHOMA
     Route: 064
     Dates: start: 20180316, end: 20180629
  6. CIPROFLOXACINE ACCORD [Suspect]
     Active Substance: CIPROFLOXACIN HYDROCHLORIDE
     Indication: PYELONEPHRITIS
     Route: 064
     Dates: start: 20190227, end: 20190308

REACTIONS (2)
  - Congenital amputation [Fatal]
  - Abortion induced [Fatal]

NARRATIVE: CASE EVENT DATE: 201905
